FAERS Safety Report 9523993 (Version 1)
Quarter: 2013Q1

REPORT INFORMATION
  Report Type: Spontaneous
  Country: US (occurrence: None)
  Receive Date: 20130313
  Receipt Date: 20130313
  Transmission Date: 20140127
  Serious: No
  Sender: FDA-Public Use
  Company Number: 1000030184

PATIENT
  Sex: Female

DRUGS (3)
  1. SAVELLA (MILNACIPRAN HYDROCHLORIDE) [Suspect]
  2. PREGABALIN (PREGABALIN) (PREGABALIN) [Concomitant]
  3. CYMBALTA (DULOXETINE HYDROCHLORIDE) (DULOXETINE HYDROCLORIDE) [Concomitant]

REACTIONS (1)
  - Oedema peripheral [None]
